FAERS Safety Report 12465593 (Version 8)
Quarter: 2016Q4

REPORT INFORMATION
  Report Type: Report from Study
  Country: None (occurrence: NL)
  Receive Date: 20160614
  Receipt Date: 20161220
  Transmission Date: 20170207
  Serious: Yes (Death, Life-Threatening, Other)
  Sender: FDA-Public Use
  Company Number: NL-ABBVIE-16P-114-1649500-00

PATIENT
  Age: 71 Year
  Sex: Male
  Weight: 75 kg

DRUGS (4)
  1. DUODOPA [Suspect]
     Active Substance: CARBIDOPA\LEVODOPA
     Dosage: CONTINUOUS DOSE REDUCED
     Route: 050
  2. CLOZAPIN [Concomitant]
     Active Substance: CLOZAPINE
     Indication: RESTLESSNESS
     Route: 048
     Dates: start: 201605
  3. DUODOPA [Suspect]
     Active Substance: CARBIDOPA\LEVODOPA
     Dosage: MORNING DOSE REDUCED WITH 2.0ML
     Route: 050
     Dates: end: 20161103
  4. DUODOPA [Suspect]
     Active Substance: CARBIDOPA\LEVODOPA
     Indication: PARKINSON^S DISEASE
     Dosage: MORNING DOSE: 9.0; CONTINUOUS DOSE: 5.0; EXTRA DOSE: 2.0; NIGHT DOSE: 3.9
     Route: 050
     Dates: start: 20100331

REACTIONS (21)
  - Pneumonia [Fatal]
  - Pain [Not Recovered/Not Resolved]
  - Cognitive disorder [Not Recovered/Not Resolved]
  - Cachexia [Not Recovered/Not Resolved]
  - Haemoglobin decreased [Unknown]
  - Bedridden [Not Recovered/Not Resolved]
  - Asthenia [Not Recovered/Not Resolved]
  - Dysstasia [Not Recovered/Not Resolved]
  - Incorrect dose administered [Unknown]
  - On and off phenomenon [Not Recovered/Not Resolved]
  - Fluid intake reduced [Not Recovered/Not Resolved]
  - Hallucination [Not Recovered/Not Resolved]
  - Antisocial behaviour [Not Recovered/Not Resolved]
  - Parkinson^s disease [Not Recovered/Not Resolved]
  - Myalgia [Not Recovered/Not Resolved]
  - Hypophagia [Not Recovered/Not Resolved]
  - Dementia [Unknown]
  - Grip strength decreased [Unknown]
  - Device difficult to use [Unknown]
  - Restlessness [Not Recovered/Not Resolved]
  - Dyskinesia [Not Recovered/Not Resolved]

NARRATIVE: CASE EVENT DATE: 201605
